FAERS Safety Report 13964114 (Version 1)
Quarter: 2017Q3

REPORT INFORMATION
  Report Type: Spontaneous
  Country: CA (occurrence: CA)
  Receive Date: 20170913
  Receipt Date: 20170913
  Transmission Date: 20171128
  Serious: Yes (Other)
  Sender: FDA-Public Use
  Company Number: CA-CONCORDIA PHARMACEUTICALS INC.-MAPI_00010991

PATIENT
  Age: 61 Year
  Sex: Female

DRUGS (15)
  1. KAYEXALATE [Suspect]
     Active Substance: SODIUM POLYSTYRENE SULFONATE
     Indication: HYPERTENSION
     Dosage: UNKNOWN
     Route: 065
     Dates: start: 20140812
  2. SOLIRIS [Suspect]
     Active Substance: ECULIZUMAB
     Indication: GLOMERULONEPHRITIS MEMBRANOPROLIFERATIVE
     Route: 042
     Dates: start: 20140509, end: 20140529
  3. DOCUSATE SODIUM. [Concomitant]
     Active Substance: DOCUSATE SODIUM
     Dates: start: 20000101
  4. FORZA-10 [Concomitant]
  5. IRBESARTAN. [Concomitant]
     Active Substance: IRBESARTAN
     Dates: start: 20140401
  6. APO-SALVENT [Concomitant]
     Active Substance: ALBUTEROL
     Dates: start: 20130101
  7. CARDURA [Concomitant]
     Active Substance: DOXAZOSIN MESYLATE
  8. MAGNESIUM [Concomitant]
     Active Substance: MAGNESIUM
     Dates: start: 20120801
  9. ATORVASTATIN [Concomitant]
     Active Substance: ATORVASTATIN
     Dates: start: 20130101
  10. SOLIRIS [Suspect]
     Active Substance: ECULIZUMAB
     Route: 042
     Dates: start: 20140605
  11. FUROSEMIDE. [Concomitant]
     Active Substance: FUROSEMIDE
     Dates: start: 20140301
  12. PANTOPRAZOLE [Concomitant]
     Active Substance: PANTOPRAZOLE
     Dates: start: 20120101
  13. ADVAGRAF [Concomitant]
     Active Substance: TACROLIMUS
     Dates: start: 20120801
  14. NOVOGESIC [Concomitant]
     Dates: start: 20140101
  15. SENNOSIDES. [Concomitant]
     Active Substance: SENNOSIDES

REACTIONS (39)
  - Respiratory tract infection [Recovered/Resolved]
  - Sinus headache [Recovered/Resolved]
  - Dysphonia [Not Recovered/Not Resolved]
  - Headache [Recovered/Resolved]
  - Oedema peripheral [Not Recovered/Not Resolved]
  - Road traffic accident [Unknown]
  - Sputum discoloured [Recovered/Resolved]
  - Cough [Not Recovered/Not Resolved]
  - Dysarthria [Recovered/Resolved]
  - Hypoaesthesia oral [Recovered/Resolved]
  - Oropharyngeal pain [Not Recovered/Not Resolved]
  - Productive cough [Not Recovered/Not Resolved]
  - Vision blurred [Recovering/Resolving]
  - Sinusitis [Recovered/Resolved]
  - Blood creatinine increased [Not Recovered/Not Resolved]
  - Confusional state [Not Recovered/Not Resolved]
  - Dizziness [Recovered/Resolved]
  - Gait disturbance [Recovered/Resolved]
  - Hypertension [Not Recovered/Not Resolved]
  - Pyrexia [Recovered/Resolved]
  - Hypertension [Not Recovered/Not Resolved]
  - Head discomfort [Recovered/Resolved]
  - Dysgraphia [Recovered/Resolved]
  - Hypoaesthesia [Recovered/Resolved]
  - Pharyngeal oedema [Recovered/Resolved]
  - Visual impairment [Recovering/Resolving]
  - Bronchitis [Not Recovered/Not Resolved]
  - Eye haemorrhage [Not Recovered/Not Resolved]
  - Glomerular filtration rate decreased [Not Recovered/Not Resolved]
  - Migraine [Recovered/Resolved]
  - Off label use [Unknown]
  - Back pain [Not Recovered/Not Resolved]
  - Diarrhoea [Not Recovered/Not Resolved]
  - Diplopia [Recovered/Resolved]
  - Hypersensitivity [Recovered/Resolved]
  - Pain in extremity [Not Recovered/Not Resolved]
  - Rash erythematous [Not Recovered/Not Resolved]
  - Fatigue [Recovered/Resolved]
  - Weight increased [Not Recovered/Not Resolved]

NARRATIVE: CASE EVENT DATE: 201405
